FAERS Safety Report 14293048 (Version 1)
Quarter: 2017Q4

REPORT INFORMATION
  Report Type: Spontaneous
  Country: GB (occurrence: GB)
  Receive Date: 20171215
  Receipt Date: 20171215
  Transmission Date: 20180321
  Serious: Yes (Disabling)
  Sender: FDA-Public Use
  Company Number: GB-TEVA-2017-GB-833235

PATIENT
  Age: 20 Year
  Sex: Male
  Weight: 71.21 kg

DRUGS (2)
  1. TRIMETHOPRIM. [Suspect]
     Active Substance: TRIMETHOPRIM
     Indication: ACNE
     Dosage: 3 DOSAGE FORMS DAILY;
     Route: 048
     Dates: start: 20171108, end: 20171109
  2. EPIDUO [Concomitant]
     Active Substance: ADAPALENE\BENZOYL PEROXIDE

REACTIONS (21)
  - Tremor [Recovered/Resolved]
  - Malaise [Recovered/Resolved]
  - Mydriasis [Recovered/Resolved with Sequelae]
  - Tonsillar hypertrophy [Recovered/Resolved]
  - Pigmentation disorder [Recovered/Resolved with Sequelae]
  - Paraesthesia [Unknown]
  - Somnolence [Recovered/Resolved with Sequelae]
  - Dysgeusia [Recovered/Resolved]
  - Abnormal dreams [Recovered/Resolved]
  - Skin exfoliation [Recovering/Resolving]
  - Chills [Recovered/Resolved]
  - Exophthalmos [Unknown]
  - Migraine [Recovered/Resolved]
  - Body temperature increased [Recovered/Resolved]
  - Ocular hyperaemia [Unknown]
  - Back pain [Recovered/Resolved with Sequelae]
  - Throat tightness [Recovered/Resolved]
  - Urticaria [Recovered/Resolved with Sequelae]
  - Eye pruritus [Recovered/Resolved]
  - Eye swelling [Recovered/Resolved with Sequelae]
  - Paraesthesia [Recovering/Resolving]

NARRATIVE: CASE EVENT DATE: 20171108
